FAERS Safety Report 8338652-6 (Version None)
Quarter: 2012Q2

REPORT INFORMATION
  Report Type: 
  Country: None (occurrence: None)
  Receive Date: 20120504
  Receipt Date: 20120503
  Transmission Date: 20120825
  Serious: No
  Sender: FDA-Public Use
  Company Number: US-PFIZER INC-2012109664

PATIENT
  Sex: Female
  Weight: 49.887 kg

DRUGS (3)
  1. CHANTIX [Suspect]
     Indication: SMOKING CESSATION THERAPY
     Dosage: 0.5 MG, DAILY
     Route: 048
     Dates: start: 20120413
  2. CHANTIX [Suspect]
     Dosage: 1 MG, 2X/DAY
     Route: 048
  3. MICARDIS HCT [Concomitant]
     Indication: HYPERTENSION
     Dosage: 40/12.5MG, DAILY

REACTIONS (1)
  - DIARRHOEA [None]
